FAERS Safety Report 19252616 (Version 1)
Quarter: 2021Q2

REPORT INFORMATION
  Report Type: Spontaneous
  Country: US (occurrence: US)
  Receive Date: 20210513
  Receipt Date: 20210513
  Transmission Date: 20210717
  Serious: Yes (Hospitalization)
  Sender: FDA-Public Use
  Company Number: None

PATIENT
  Age: 65 Year
  Sex: Female
  Weight: 87.5 kg

DRUGS (1)
  1. OLANZAPINE. [Suspect]
     Active Substance: OLANZAPINE
     Dates: end: 20210228

REACTIONS (4)
  - Pain [None]
  - White blood cell count decreased [None]
  - Chills [None]
  - Neutrophil count decreased [None]

NARRATIVE: CASE EVENT DATE: 20210318
